FAERS Safety Report 20538476 (Version 1)
Quarter: 2022Q1

REPORT INFORMATION
  Report Type: Spontaneous
  Country: GB (occurrence: GB)
  Receive Date: 20220302
  Receipt Date: 20220302
  Transmission Date: 20220423
  Serious: Yes (Other)
  Sender: FDA-Public Use
  Company Number: None

PATIENT
  Age: 21 Year
  Sex: Female
  Weight: 44.9 kg

DRUGS (2)
  1. OVEX [Suspect]
     Active Substance: MEBENDAZOLE
     Indication: Enterobiasis
     Dosage: THREE DOSES WERE TAKEN. THE LAST DOSE OF DRUG WAS TAKEN ON 21-AUG-2021.
     Route: 048
     Dates: start: 20210801
  2. DESOGESTREL [Concomitant]
     Active Substance: DESOGESTREL
     Indication: Ill-defined disorder
     Route: 065

REACTIONS (2)
  - Abdominal pain upper [Recovered/Resolved]
  - Medication error [Unknown]

NARRATIVE: CASE EVENT DATE: 20210821
